FAERS Safety Report 18639631 (Version 2)
Quarter: 2021Q1

REPORT INFORMATION
  Report Type: Spontaneous
  Country: MX (occurrence: MX)
  Receive Date: 20201220
  Receipt Date: 20210107
  Transmission Date: 20210419
  Serious: Yes (Other)
  Sender: FDA-Public Use
  Company Number: MX-LUPIN PHARMACEUTICALS INC.-2020-10674

PATIENT
  Sex: Male
  Weight: 1 kg

DRUGS (5)
  1. MAGNESIUM SULPHATE [MAGNESIUM SULFATE] [Suspect]
     Active Substance: MAGNESIUM SULFATE
     Indication: PRODUCT USED FOR UNKNOWN INDICATION
     Dosage: 4 GRAM, IN 30 MINUTES
     Route: 064
  2. MAGNESIUM SULPHATE [MAGNESIUM SULFATE] [Suspect]
     Active Substance: MAGNESIUM SULFATE
     Dosage: 1 GRAM, INFUSION; HOURLY ADMINISTRATION
     Route: 064
  3. MAGNESIUM SULPHATE [MAGNESIUM SULFATE] [Suspect]
     Active Substance: MAGNESIUM SULFATE
     Dosage: 4 GRAM, UNK
     Route: 064
  4. METHYLDOPA. [Suspect]
     Active Substance: METHYLDOPA
     Indication: PRODUCT USED FOR UNKNOWN INDICATION
     Dosage: 500 MILLIGRAM, TID
     Route: 064
  5. LEVETIRACETAM. [Suspect]
     Active Substance: LEVETIRACETAM
     Indication: PRODUCT USED FOR UNKNOWN INDICATION
     Dosage: UNK
     Route: 064

REACTIONS (4)
  - Low birth weight baby [Unknown]
  - Foetal exposure during pregnancy [Unknown]
  - Premature baby [Unknown]
  - Apgar score low [Unknown]
